FAERS Safety Report 8131674-X (Version None)
Quarter: 2012Q1

REPORT INFORMATION
  Report Type: 
  Country: None (occurrence: None)
  Receive Date: 20120208
  Receipt Date: 20120130
  Transmission Date: 20120608
  Serious: Yes (Other)
  Sender: FDA-Public Use
  Company Number: 2011SP056269

PATIENT
  Sex: Female

DRUGS (3)
  1. RIBAVIRIN [Suspect]
     Indication: HEPATITIS C
     Dates: start: 20111020, end: 20120102
  2. VICTRELIS [Suspect]
     Indication: HEPATITIS C
     Dates: start: 20111118, end: 20120102
  3. PEG-INTRON [Suspect]
     Indication: HEPATITIS C
     Dates: start: 20111020, end: 20111229

REACTIONS (8)
  - HAEMOGLOBIN DECREASED [None]
  - VOMITING [None]
  - FEELING ABNORMAL [None]
  - WEIGHT DECREASED [None]
  - DEHYDRATION [None]
  - FEELING DRUNK [None]
  - DIZZINESS [None]
  - URINARY INCONTINENCE [None]
